FAERS Safety Report 17609240 (Version 1)
Quarter: 2020Q2

REPORT INFORMATION
  Report Type: Spontaneous
  Country: GB (occurrence: GB)
  Receive Date: 20200401
  Receipt Date: 20200401
  Transmission Date: 20200713
  Serious: Yes (Hospitalization)
  Sender: FDA-Public Use
  Company Number: GB-TEVA-2020-GB-1214572

PATIENT
  Age: 82 Year
  Sex: Male

DRUGS (7)
  1. APIXABAN [Concomitant]
     Active Substance: APIXABAN
     Dosage: 10 MG
     Route: 048
  2. CETRABEN EMOLLIENT CREAM [Concomitant]
     Route: 061
  3. LANSOPRAZOLE. [Suspect]
     Active Substance: LANSOPRAZOLE
     Dosage: MORNING 15 MG
     Route: 048
     Dates: end: 20200306
  4. PERINDOPRIL TERT-BUTYLAMINE [Concomitant]
     Active Substance: PERINDOPRIL ERBUMINE
     Dosage: NIGHT, 8 MG
     Route: 048
  5. SPIRONOLACTONE. [Suspect]
     Active Substance: SPIRONOLACTONE
     Dosage: MORNING 25 MG
     Route: 048
     Dates: end: 20200306
  6. ATENOLOL. [Suspect]
     Active Substance: ATENOLOL
     Dosage: MORNING 50 MG
     Route: 048
     Dates: end: 20200309
  7. FELODIPINE. [Suspect]
     Active Substance: FELODIPINE
     Dosage: MORNING 10 MG
     Route: 048
     Dates: end: 20200307

REACTIONS (5)
  - Hyponatraemia [Recovering/Resolving]
  - Oedema [Unknown]
  - Dyspnoea [Unknown]
  - Lower respiratory tract infection [Unknown]
  - Atrial fibrillation [Unknown]

NARRATIVE: CASE EVENT DATE: 20200306
